FAERS Safety Report 13890120 (Version 1)
Quarter: 2017Q3

REPORT INFORMATION
  Report Type: Spontaneous
  Country: FR (occurrence: FR)
  Receive Date: 20170822
  Receipt Date: 20170822
  Transmission Date: 20171127
  Serious: Yes (Other)
  Sender: FDA-Public Use
  Company Number: FR-BAXTER-2017BAX030195

PATIENT
  Age: 54 Year
  Sex: Female

DRUGS (4)
  1. OFLOXACIN. [Suspect]
     Active Substance: OFLOXACIN
     Indication: CHOLECYSTITIS ACUTE
     Route: 065
  2. METRONIDAZOLE; SODIUM CHLORIDE_METRONIDAZOLE 500.00 MG/100 ML; SODIUM [Suspect]
     Active Substance: METRONIDAZOLE
     Indication: POSTOPERATIVE WOUND INFECTION
     Route: 065
  3. CEFTRIAXONE. [Suspect]
     Active Substance: CEFTRIAXONE
     Indication: POSTOPERATIVE WOUND INFECTION
     Route: 065
  4. METRONIDAZOLE; SODIUM CHLORIDE_METRONIDAZOLE 500.00 MG/100 ML; SODIUM [Suspect]
     Active Substance: METRONIDAZOLE
     Indication: CHOLECYSTITIS ACUTE
     Route: 065

REACTIONS (1)
  - Factor V inhibition [Recovered/Resolved]
